FAERS Safety Report 8773749 (Version 1)
Quarter: 2012Q4

REPORT INFORMATION
  Report Type: 
  Country: US (occurrence: US)
  Receive Date: 20120907
  Receipt Date: 20120907
  Transmission Date: 20130627
  Serious: Yes (Disabling)
  Sender: FDA-Public Use
  Company Number: US-PFIZER INC-2012219715

PATIENT
  Age: 53 Year
  Sex: Male
  Weight: 58.96 kg

DRUGS (4)
  1. GABAPENTIN [Suspect]
     Indication: NERVE INJURY
     Dosage: UNK
  2. CELEBREX [Suspect]
     Indication: NERVE INJURY
     Dosage: 75 mg, 2x/day
     Route: 048
  3. CELEBREX [Suspect]
     Dosage: UNK
     Route: 048
  4. LORTAB [Concomitant]
     Indication: PAIN
     Dosage: UNK, 4x/day

REACTIONS (5)
  - Arthropathy [Unknown]
  - Blood cholesterol increased [Unknown]
  - Pain [Unknown]
  - Drug ineffective [Unknown]
  - Swelling [Unknown]
